FAERS Safety Report 9373410 (Version 1)
Quarter: 2013Q2

REPORT INFORMATION
  Report Type: Spontaneous
  Country: AR (occurrence: AR)
  Receive Date: 20130627
  Receipt Date: 20130627
  Transmission Date: 20140414
  Serious: Yes (Other)
  Sender: FDA-Public Use
  Company Number: AR-PFIZER INC-2013188803

PATIENT
  Age: 11 Year
  Sex: Female

DRUGS (1)
  1. GENOTROPIN [Suspect]
     Indication: BODY HEIGHT BELOW NORMAL
     Dosage: 0.6 TO 1 MG, 6 TIMES PER WEEK
     Dates: start: 20130308

REACTIONS (3)
  - Bronchitis [Recovering/Resolving]
  - Pyrexia [Recovering/Resolving]
  - Tonsillitis [Unknown]
